FAERS Safety Report 14274651 (Version 4)
Quarter: 2018Q3

REPORT INFORMATION
  Report Type: Report from Study
  Country: US (occurrence: US)
  Receive Date: 20171212
  Receipt Date: 20180703
  Transmission Date: 20181010
  Serious: Yes (Death)
  Sender: FDA-Public Use
  Company Number: US-PFIZER INC-2017524538

PATIENT
  Age: 74 Year
  Sex: Female
  Weight: 67.9 kg

DRUGS (10)
  1. PACLITAXEL. [Suspect]
     Active Substance: PACLITAXEL
     Indication: FALLOPIAN TUBE CANCER
     Dosage: 80 MG/M2 (135 MG), WEEKLY
     Route: 042
     Dates: start: 20171108
  2. BACILLUS COAGULANS [Concomitant]
     Active Substance: BACILLUS COAGULANS
     Indication: PROPHYLAXIS
     Dosage: 1 TAB, DAILY
     Route: 048
     Dates: start: 20170602
  3. CARBOPLATIN. [Suspect]
     Active Substance: CARBOPLATIN
     Indication: FALLOPIAN TUBE CANCER
     Dosage: 467.4 MG, EVERY 3 WEEKS
     Route: 042
     Dates: start: 20171108
  4. SENNOSIDES. [Concomitant]
     Active Substance: SENNOSIDES
     Indication: CONSTIPATION PROPHYLAXIS
     Dosage: 1?2 TABS, DAILY
     Route: 048
     Dates: start: 20171103
  5. ASPIRIN /00002701/ [Concomitant]
     Active Substance: ASPIRIN
     Indication: PROPHYLAXIS
     Dosage: 81 MG, DAILY
     Route: 048
     Dates: start: 20120418
  6. NO SUBJECT DRUG [Suspect]
     Active Substance: UNSPECIFIED INGREDIENT
     Dosage: NO DOSE GIVEN
  7. FERROUS SULFATE. [Concomitant]
     Active Substance: FERROUS SULFATE
     Indication: NUTRITIONAL SUPPLEMENTATION
     Dosage: 325 MG, 2X/DAY
     Route: 048
     Dates: start: 20171103
  8. POLYETHYLENE GLYCOL [Concomitant]
     Active Substance: POLYETHYLENE GLYCOLS
     Indication: CONSTIPATION PROPHYLAXIS
     Dosage: 17 G, DAILY
     Route: 048
     Dates: start: 20171103
  9. MEGESTROL [Concomitant]
     Active Substance: MEGESTROL
     Indication: APPETITE DISORDER
     Dosage: 200 MG, DAILY
     Route: 048
     Dates: start: 20171025
  10. CALCIUM [Concomitant]
     Active Substance: CALCIUM
     Indication: SUPPLEMENTATION THERAPY
     Dosage: 1 TAB, DAILY
     Route: 048
     Dates: start: 20171129

REACTIONS (1)
  - Pulmonary embolism [Fatal]

NARRATIVE: CASE EVENT DATE: 20171204
